FAERS Safety Report 9881960 (Version 1)
Quarter: 2014Q1

REPORT INFORMATION
  Report Type: Spontaneous
  Country: FR (occurrence: FR)
  Receive Date: 20140207
  Receipt Date: 20140207
  Transmission Date: 20141002
  Serious: Yes (Other)
  Sender: FDA-Public Use
  Company Number: FR-BRISTOL-MYERS SQUIBB COMPANY-20114906

PATIENT
  Age: 45 Year
  Sex: Female

DRUGS (2)
  1. TAXOL [Suspect]
     Indication: BREAST CANCER
     Dosage: 2ND COURSE:25NOV13?3RD COURSE:16DEC13
     Route: 042
     Dates: start: 20131104
  2. AVASTIN [Suspect]
     Indication: BREAST CANCER
     Dosage: 2ND COURSE:25NOV13?3RD COURSE:16DEC13
     Route: 042
     Dates: start: 20131104

REACTIONS (2)
  - Pruritus generalised [Unknown]
  - Folliculitis [Unknown]
